FAERS Safety Report 5356112-1 (Version None)
Quarter: 2007Q2

REPORT INFORMATION
  Report Type: 
  Country: None (occurrence: None)
  Receive Date: 20070613
  Receipt Date: 20061207
  Transmission Date: 20071010
  Serious: Yes (Other)
  Sender: FDA-Public Use
  Company Number: GB-PFIZER INC-2006149033

PATIENT
  Age: 6 Year
  Sex: Male
  Weight: 27.1 kg

DRUGS (2)
  1. CETIRIZINE (SYRUP) [Suspect]
     Indication: SEASONAL ALLERGY
     Route: 048
     Dates: start: 20060501, end: 20060501
  2. LORATADINE [Concomitant]
     Indication: SEASONAL ALLERGY
     Route: 048

REACTIONS (3)
  - AGGRESSION [None]
  - INTENTIONAL SELF-INJURY [None]
  - MANIA [None]
